FAERS Safety Report 23596710 (Version 1)
Quarter: 2024Q1

REPORT INFORMATION
  Report Type: Spontaneous
  Country: GB (occurrence: GB)
  Receive Date: 20240305
  Receipt Date: 20240305
  Transmission Date: 20240410
  Serious: Yes (Other)
  Sender: FDA-Public Use
  Company Number: None

PATIENT
  Age: 54 Year
  Sex: Female

DRUGS (5)
  1. GABAPENTIN [Suspect]
     Active Substance: GABAPENTIN
     Indication: Product used for unknown indication
     Dosage: 300 MILLIGRAM, TID
     Route: 048
  2. CODEINE [Concomitant]
     Active Substance: CODEINE
     Dosage: 30 MILLIGRAM, TID (AS NECESSARY) (1-2 TDS)
     Route: 065
  3. LANSOPRAZOLE [Concomitant]
     Active Substance: LANSOPRAZOLE
     Dosage: 30 MILLIGRAM, QD (OM)
     Route: 065
  4. CHOLECALCIFEROL [Concomitant]
     Active Substance: CHOLECALCIFEROL
     Dosage: 1 DOSAGE FORM, BID (COLECALCIFEROL 400UNIT / CALCIUM CARBONATE 1.5G)
     Route: 065
  5. AMITRIPTYLINE [Concomitant]
     Active Substance: AMITRIPTYLINE
     Dosage: 25 MILLIGRAM, QD
     Route: 065

REACTIONS (1)
  - Appendicitis [Recovered/Resolved]
